FAERS Safety Report 4368546-2 (Version None)
Quarter: 2004Q2

REPORT INFORMATION
  Report Type: 
  Country: None (occurrence: None)
  Receive Date: 20040602
  Receipt Date: 20040513
  Transmission Date: 20050107
  Serious: Yes (Disabling, Other)
  Sender: FDA-Public Use
  Company Number: 200417895BWH

PATIENT
  Age: 38 Year
  Sex: Male
  Weight: 108.8633 kg

DRUGS (2)
  1. CIPRO [Suspect]
     Indication: EPIDIDYMITIS
     Dosage: ORAL
     Route: 048
     Dates: start: 20030301
  2. CIPRO [Suspect]
     Indication: URINARY TRACT INFECTION
     Dosage: ORAL
     Route: 048
     Dates: start: 20030301

REACTIONS (5)
  - IMPAIRED WORK ABILITY [None]
  - JOINT RANGE OF MOTION DECREASED [None]
  - POLYARTHRITIS [None]
  - REFUSAL OF TREATMENT BY PATIENT [None]
  - TENDON RUPTURE [None]
